FAERS Safety Report 5839578-X (Version None)
Quarter: 2008Q3

REPORT INFORMATION
  Report Type: 
  Country: None (occurrence: None)
  Receive Date: 20080811
  Receipt Date: 20080624
  Transmission Date: 20090109
  Serious: No
  Sender: FDA-Public Use
  Company Number: A0734535A

PATIENT
  Sex: Female

DRUGS (1)
  1. TREXIMET [Suspect]
     Route: 065

REACTIONS (1)
  - STOMACH DISCOMFORT [None]
